FAERS Safety Report 12433350 (Version 1)
Quarter: 2016Q2

REPORT INFORMATION
  Report Type: Spontaneous
  Country: US (occurrence: US)
  Receive Date: 20160603
  Receipt Date: 20160603
  Transmission Date: 20160815
  Serious: Yes (Hospitalization, Other)
  Sender: FDA-Public Use
  Company Number: US-BAYER-2016-101312

PATIENT
  Sex: Male

DRUGS (2)
  1. AVELOX [Suspect]
     Active Substance: MOXIFLOXACIN HYDROCHLORIDE
     Dosage: UNK
  2. LEVAQUIN [Suspect]
     Active Substance: LEVOFLOXACIN
     Dosage: UNK

REACTIONS (12)
  - Balance disorder [None]
  - Musculoskeletal disorder [None]
  - Pain [None]
  - Nervous system disorder [None]
  - Skin injury [None]
  - Cardiovascular disorder [None]
  - Neuropathy peripheral [None]
  - Burning sensation [None]
  - Mental disorder [None]
  - Paraesthesia [None]
  - Hypoaesthesia [None]
  - Asthenia [None]
